FAERS Safety Report 5067253-0 (Version None)
Quarter: 2006Q3

REPORT INFORMATION
  Report Type: 
  Country: None (occurrence: None)
  Receive Date: 20060726
  Receipt Date: 20060713
  Transmission Date: 20061208
  Serious: Yes (Death, Hospitalization)
  Sender: FDA-Public Use
  Company Number: 2006078989

PATIENT
  Age: 68 Year
  Sex: Male

DRUGS (4)
  1. FELDENE [Suspect]
     Indication: BACK PAIN
     Dosage: AS NECESSARY, ORAL
     Route: 048
     Dates: start: 19900101
  2. CORISTINA D (ACETYLSALICYLIC ACID, CAFFEINE, CHLORPHENAMINE MALEATE, P [Concomitant]
  3. SALBUTAMOL SULFATE [Concomitant]
  4. ALL OTHER THERAPEUTIC PRODUCTS [Concomitant]

REACTIONS (1)
  - EMPHYSEMA [None]
